FAERS Safety Report 11331404 (Version 3)
Quarter: 2015Q3

REPORT INFORMATION
  Report Type: Report from Study
  Country: MX (occurrence: MX)
  Receive Date: 20150803
  Receipt Date: 20150813
  Transmission Date: 20151125
  Serious: Yes (Other)
  Sender: FDA-Public Use
  Company Number: PHHY2012MX045593

PATIENT
  Age: 55 Year
  Sex: Female

DRUGS (6)
  1. CO-DIOVAN [Suspect]
     Active Substance: HYDROCHLOROTHIAZIDE\VALSARTAN
     Dosage: 1 DF, (160/12.5)
     Route: 065
  2. METOPROLOL [Concomitant]
     Active Substance: METOPROLOL
     Indication: HYPERTENSION
     Dosage: 0.5 TABLET, DAILY
     Route: 065
     Dates: start: 201202
  3. CO-DIOVAN [Suspect]
     Active Substance: HYDROCHLOROTHIAZIDE\VALSARTAN
     Dosage: 1 DF, (80/12.5), UNK
     Route: 065
     Dates: start: 2012
  4. VERAPAMIL [Concomitant]
     Active Substance: VERAPAMIL HYDROCHLORIDE
     Indication: BLOOD PRESSURE MEASUREMENT
     Dosage: 1 (80) OT, (IN THE MORNING AND AT NIGHT)
     Route: 065
     Dates: start: 2012
  5. CO-DIOVAN [Suspect]
     Active Substance: HYDROCHLOROTHIAZIDE\VALSARTAN
     Indication: HYPERTENSION
     Dosage: 1 DF (160/12.5), QD
     Route: 048
     Dates: start: 201201
  6. CO-DIOVAN [Suspect]
     Active Substance: HYDROCHLOROTHIAZIDE\VALSARTAN
     Dosage: 1 DF, (80/12.5)
     Route: 065

REACTIONS (9)
  - Nephrolithiasis [Not Recovered/Not Resolved]
  - Gallbladder disorder [Recovered/Resolved]
  - Pain in extremity [Not Recovered/Not Resolved]
  - Blood pressure increased [Recovered/Resolved]
  - Blood pressure increased [Unknown]
  - Varicose vein [Not Recovered/Not Resolved]
  - Headache [Unknown]
  - Palpitations [Unknown]
  - Fatigue [Not Recovered/Not Resolved]

NARRATIVE: CASE EVENT DATE: 201204
